FAERS Safety Report 7547993-1 (Version None)
Quarter: 2011Q2

REPORT INFORMATION
  Report Type: 
  Country: None (occurrence: None)
  Receive Date: 20110608
  Receipt Date: 20110524
  Transmission Date: 20111010
  Serious: Yes (Other)
  Sender: FDA-Public Use
  Company Number: FK201101059

PATIENT
  Age: 38 Year
  Sex: Female

DRUGS (2)
  1. VANCOMYCIN HYDROCHLORIDE [Suspect]
     Indication: ANTIBIOTIC THERAPY
  2. CEFUROXIME [Concomitant]

REACTIONS (1)
  - LEUKOCYTOCLASTIC VASCULITIS [None]
